FAERS Safety Report 9863037 (Version 3)
Quarter: 2014Q2

REPORT INFORMATION
  Report Type: Report from Study
  Country: CA (occurrence: CA)
  Receive Date: 20140203
  Receipt Date: 20140429
  Transmission Date: 20141212
  Serious: Yes (Hospitalization)
  Sender: FDA-Public Use
  Company Number: CA-ROCHE-1163479

PATIENT
  Age: 52 Year
  Sex: Female
  Weight: 102 kg

DRUGS (11)
  1. ACTEMRA [Suspect]
     Indication: RHEUMATOID ARTHRITIS
     Route: 042
     Dates: start: 20121004
  2. ACTEMRA [Suspect]
     Route: 042
     Dates: start: 20130924
  3. METHOTREXATE [Concomitant]
  4. HYDROXYCHLOROQUINE [Concomitant]
  5. CELEBREX [Concomitant]
  6. ELTROXIN [Concomitant]
  7. FOLIC ACID [Concomitant]
  8. LASIX [Concomitant]
  9. LYRICA [Concomitant]
  10. KADIAN [Concomitant]
  11. FLEXERIL (CANADA) [Concomitant]

REACTIONS (7)
  - Infection [Unknown]
  - Panniculitis [Unknown]
  - Heart rate increased [Not Recovered/Not Resolved]
  - Pneumonia [Not Recovered/Not Resolved]
  - Emotional distress [Unknown]
  - Blood pressure increased [Unknown]
  - Hypotension [Unknown]
